FAERS Safety Report 8389121-9 (Version None)
Quarter: 2012Q2

REPORT INFORMATION
  Report Type: 
  Country: None (occurrence: None)
  Receive Date: 20120528
  Receipt Date: 20120522
  Transmission Date: 20120825
  Serious: Yes (Other)
  Sender: FDA-Public Use
  Company Number: PHEH2006US14768

PATIENT
  Sex: Male

DRUGS (1)
  1. ZOMETA [Suspect]

REACTIONS (14)
  - PAIN [None]
  - EXPOSED BONE IN JAW [None]
  - JOINT EFFUSION [None]
  - ABDOMINAL PAIN [None]
  - OEDEMA PERIPHERAL [None]
  - SMALL INTESTINAL OBSTRUCTION [None]
  - OSTEONECROSIS OF JAW [None]
  - IMPAIRED HEALING [None]
  - BONE LESION [None]
  - HYPERTENSION [None]
  - DENTAL CARIES [None]
  - FALL [None]
  - FIBULA FRACTURE [None]
  - CARCINOID TUMOUR OF THE SMALL BOWEL [None]
